FAERS Safety Report 5368336-8 (Version None)
Quarter: 2007Q2

REPORT INFORMATION
  Report Type: 
  Country: None (occurrence: None)
  Receive Date: 20070625
  Receipt Date: 20070608
  Transmission Date: 20071010
  Serious: Yes (Hospitalization)
  Sender: FDA-Public Use
  Company Number: FR-ABBOTT-07P-056-0370877-00

PATIENT
  Age: 64 Year
  Sex: Male
  Weight: 88 kg

DRUGS (4)
  1. TARKA [Suspect]
     Indication: HYPERTENSION
     Route: 048
     Dates: start: 20070301, end: 20070420
  2. KETOPROFEN [Interacting]
     Indication: ABDOMINAL PAIN
     Route: 048
     Dates: end: 20070416
  3. SIMVASTATIN [Concomitant]
     Indication: HYPERCHOLESTEROLAEMIA
     Route: 048
  4. TAMSULOSIN HCL [Concomitant]
     Indication: BENIGN NEOPLASM OF PROSTATE
     Route: 048

REACTIONS (4)
  - DRUG INTERACTION [None]
  - HYDRONEPHROSIS [None]
  - NEPHROLITHIASIS [None]
  - RENAL FAILURE ACUTE [None]
